FAERS Safety Report 8264713-6 (Version None)
Quarter: 2012Q2

REPORT INFORMATION
  Report Type: 
  Country: None (occurrence: None)
  Receive Date: 20120406
  Receipt Date: 20120330
  Transmission Date: 20120825
  Serious: Yes (Hospitalization, Other)
  Sender: FDA-Public Use
  Company Number: DE-JNJFOC-20120304879

PATIENT
  Sex: Male
  Weight: 90 kg

DRUGS (12)
  1. HALDOL [Suspect]
     Indication: PRODUCT USED FOR UNKNOWN INDICATION
     Route: 048
     Dates: start: 20120309, end: 20120309
  2. DIAZEPAM [Suspect]
     Indication: PRODUCT USED FOR UNKNOWN INDICATION
     Route: 048
  3. VALPROATE SODIUM [Suspect]
     Indication: PRODUCT USED FOR UNKNOWN INDICATION
     Route: 048
  4. LEVOPROMAZIN [Suspect]
     Indication: PRODUCT USED FOR UNKNOWN INDICATION
     Route: 048
  5. VALPROATE SODIUM [Suspect]
     Route: 048
     Dates: start: 20120309, end: 20120309
  6. ZYPREXA [Suspect]
     Indication: PRODUCT USED FOR UNKNOWN INDICATION
     Route: 048
  7. DIAZEPAM [Suspect]
     Route: 048
     Dates: start: 20120309, end: 20120309
  8. ZYPREXA [Suspect]
     Route: 048
     Dates: start: 20120309, end: 20120309
  9. LEVOPROMAZIN [Suspect]
     Route: 048
     Dates: start: 20120309, end: 20120309
  10. ALL OTHER THERAPEUTICS [Suspect]
     Route: 048
     Dates: start: 20120309, end: 20120309
  11. HALDOL [Suspect]
     Route: 048
  12. ALL OTHER THERAPEUTICS [Suspect]
     Indication: PRODUCT USED FOR UNKNOWN INDICATION
     Route: 048

REACTIONS (3)
  - SLUGGISHNESS [None]
  - SUICIDE ATTEMPT [None]
  - INTENTIONAL DRUG MISUSE [None]
